FAERS Safety Report 22346011 (Version 1)
Quarter: 2023Q2

REPORT INFORMATION
  Report Type: Spontaneous
  Country: US (occurrence: None)
  Receive Date: 20230519
  Receipt Date: 20230519
  Transmission Date: 20230721
  Serious: No
  Sender: FDA-Public Use
  Company Number: None

PATIENT
  Age: 58 Year
  Sex: Male
  Weight: 151.95 kg

DRUGS (6)
  1. IMATINIB MESYLATE [Suspect]
     Active Substance: IMATINIB MESYLATE
     Indication: Gastrointestinal stromal tumour
     Dosage: FREQUENCY : DAILY;?
     Route: 048
  2. POTASSIUM PHOSPHATE, MONOBASIC [Concomitant]
     Active Substance: POTASSIUM PHOSPHATE, MONOBASIC
  3. VITAMINS [Concomitant]
     Active Substance: VITAMINS
  4. NIFEDIPINE [Concomitant]
     Active Substance: NIFEDIPINE
  5. POTASSIUM CITRATE [Concomitant]
     Active Substance: POTASSIUM CITRATE
  6. WHEY PROTEIN ISOLATE [Concomitant]

REACTIONS (3)
  - COVID-19 [None]
  - Diarrhoea [None]
  - Therapy interrupted [None]
